FAERS Safety Report 4625881-8 (Version None)
Quarter: 2005Q1

REPORT INFORMATION
  Report Type: 
  Country: None (occurrence: None)
  Receive Date: 20050330
  Receipt Date: 20050324
  Transmission Date: 20050727
  Serious: Yes (Death, Other)
  Sender: FDA-Public Use
  Company Number: 163-20785-03110535

PATIENT
  Age: 50 Year
  Sex: Male

DRUGS (1)
  1. THALOMID [Suspect]
     Indication: METASTATIC RENAL CELL CARCINOMA
     Dosage: 800 MG, DAILY, ORAL
     Route: 048
     Dates: start: 20030207, end: 20030601

REACTIONS (6)
  - DISEASE PROGRESSION [None]
  - DYSPHAGIA [None]
  - GASTROINTESTINAL MOTILITY DISORDER [None]
  - METASTASIS [None]
  - NEOPLASM PROGRESSION [None]
  - OESOPHAGEAL DISORDER [None]
